FAERS Safety Report 15378492 (Version 1)
Quarter: 2018Q3

REPORT INFORMATION
  Report Type: Spontaneous
  Country: US (occurrence: US)
  Receive Date: 20180913
  Receipt Date: 20180913
  Transmission Date: 20181010
  Serious: No
  Sender: FDA-Public Use
  Company Number: US-OMEROS CORPORATION-2018OME00003

PATIENT
  Age: 82 Year
  Sex: Female
  Weight: 70.75 kg

DRUGS (18)
  1. FENOFIBRATE. [Concomitant]
     Active Substance: FENOFIBRATE
  2. OMIDRIA [Suspect]
     Active Substance: KETOROLAC\PHENYLEPHRINE
     Indication: INTRAOCULAR LENS IMPLANT
  3. PROPARACAINE [Concomitant]
     Active Substance: PROPARACAINE
     Dosage: UNK
     Dates: start: 20180719, end: 20180719
  4. NEBIVOLOL. [Concomitant]
     Active Substance: NEBIVOLOL
  5. DICLOFENAC [Concomitant]
     Active Substance: DICLOFENAC
  6. PREMARIN [Concomitant]
     Active Substance: ESTROGENS, CONJUGATED
  7. BSS (ALCON) [Concomitant]
     Dosage: 500 ML, UNK
     Dates: start: 20180719, end: 20180719
  8. LEVOTHYROXINE. [Concomitant]
     Active Substance: LEVOTHYROXINE
  9. OMEPRAZOLE. [Concomitant]
     Active Substance: OMEPRAZOLE
  10. VITAMIN D [Concomitant]
     Active Substance: CHOLECALCIFEROL
  11. TROPICAMIDE. [Concomitant]
     Active Substance: TROPICAMIDE
     Dosage: UNK
     Dates: start: 20180719, end: 20180719
  12. HEALON GV [Concomitant]
     Dosage: UNK
     Dates: start: 20180719, end: 20180719
  13. OMIDRIA [Suspect]
     Active Substance: KETOROLAC\PHENYLEPHRINE
     Indication: CATARACT OPERATION
     Dosage: UNK UNK, ONCE
     Route: 047
     Dates: start: 20180719, end: 20180719
  14. HEALON ENDOCOAT [Concomitant]
     Dosage: UNK
     Dates: start: 20180719, end: 20180719
  15. AMLODIPINE [Concomitant]
     Active Substance: AMLODIPINE BESYLATE
  16. NEO?SYNEPHRINE [Concomitant]
     Active Substance: PHENYLEPHRINE HYDROCHLORIDE
     Dosage: UNK
     Dates: start: 20180719, end: 20180719
  17. NEO?SYNEPHRINE [Concomitant]
     Active Substance: PHENYLEPHRINE HYDROCHLORIDE
     Dosage: UNK
     Dates: start: 20180719, end: 20180719
  18. LOSARTAN. [Concomitant]
     Active Substance: LOSARTAN

REACTIONS (1)
  - Pigment dispersion syndrome [Recovered/Resolved]

NARRATIVE: CASE EVENT DATE: 20180719
